FAERS Safety Report 14000244 (Version 1)
Quarter: 2017Q3

REPORT INFORMATION
  Report Type: Spontaneous
  Country: US (occurrence: US)
  Receive Date: 20170922
  Receipt Date: 20170922
  Transmission Date: 20171128
  Serious: Yes (Hospitalization)
  Sender: FDA-Public Use
  Company Number: PR-JNJFOC-20170811127

PATIENT
  Age: 81 Year
  Sex: Male
  Weight: 86.18 kg

DRUGS (2)
  1. ASPIRIN. [Suspect]
     Active Substance: ASPIRIN
     Indication: PRODUCT USED FOR UNKNOWN INDICATION
     Route: 065
  2. XARELTO [Suspect]
     Active Substance: RIVAROXABAN
     Indication: PULMONARY EMBOLISM
     Dosage: 15 - 20 MG
     Route: 048
     Dates: start: 20160402, end: 20160413

REACTIONS (2)
  - International normalised ratio increased [Recovering/Resolving]
  - Large intestinal haemorrhage [Recovering/Resolving]

NARRATIVE: CASE EVENT DATE: 201604
